FAERS Safety Report 7405176-X (Version None)
Quarter: 2011Q2

REPORT INFORMATION
  Report Type: 
  Country: None (occurrence: None)
  Receive Date: 20110411
  Receipt Date: 20110329
  Transmission Date: 20111010
  Serious: Yes (Disabling)
  Sender: FDA-Public Use
  Company Number: GB-ELI_LILLY_AND_COMPANY-GB201103007849

PATIENT
  Sex: Male

DRUGS (1)
  1. CIALIS [Suspect]

REACTIONS (1)
  - BLINDNESS UNILATERAL [None]
